FAERS Safety Report 10048790 (Version 2)
Quarter: 2014Q2

REPORT INFORMATION
  Report Type: Report from Study
  Country: FR (occurrence: FR)
  Receive Date: 20140331
  Receipt Date: 20140414
  Transmission Date: 20141212
  Serious: Yes (Hospitalization)
  Sender: FDA-Public Use
  Company Number: FR-ABBVIE-14P-056-1216165-00

PATIENT
  Age: 59 Year
  Sex: Female
  Weight: 52 kg

DRUGS (15)
  1. HUMIRA [Suspect]
     Indication: RHEUMATOID ARTHRITIS
     Route: 058
     Dates: start: 20120825, end: 20131116
  2. HUMIRA [Suspect]
     Route: 058
     Dates: start: 20140108
  3. KARDEGIC [Concomitant]
     Indication: MYOCARDIAL INFARCTION
     Dates: start: 200109
  4. TAHOR [Concomitant]
     Indication: MYOCARDIAL INFARCTION
     Dates: start: 200109
  5. CELECTOL [Concomitant]
     Indication: MYOCARDIAL INFARCTION
     Dates: start: 200109
  6. LANTUS [Concomitant]
     Indication: DIABETES MELLITUS
     Dates: start: 200609
  7. ESOMEPRAZOLE [Concomitant]
     Indication: GASTROOESOPHAGEAL REFLUX PROPHYLAXIS
     Dates: start: 201112
  8. HUMALOG [Concomitant]
     Indication: DIABETES MELLITUS
     Dates: start: 200609
  9. METHOTREXATE [Concomitant]
     Indication: RHEUMATOID ARTHRITIS
     Dates: start: 20110625
  10. CORTANCYL [Concomitant]
     Indication: RHEUMATOID ARTHRITIS
     Dates: start: 20110917, end: 20130720
  11. APRANAX [Concomitant]
     Indication: RHEUMATOID ARTHRITIS
     Dates: start: 20111215, end: 201209
  12. APRANAX [Concomitant]
     Dates: start: 20131108, end: 20131110
  13. ANTIBIOTIC [Concomitant]
     Indication: BRONCHITIS
     Dates: start: 20121231, end: 20130106
  14. SPECIAFOLDINE [Concomitant]
     Indication: PROPHYLAXIS
     Dates: start: 20110625
  15. SPECIAFOLDINE [Concomitant]
     Indication: ANAEMIA

REACTIONS (2)
  - Nodule [Recovered/Resolved]
  - Lipoma [Recovered/Resolved]
